FAERS Safety Report 7730743-3 (Version None)
Quarter: 2011Q3

REPORT INFORMATION
  Report Type: 
  Country: None (occurrence: None)
  Receive Date: 20110906
  Receipt Date: 20110825
  Transmission Date: 20111222
  Serious: Yes (Hospitalization)
  Sender: FDA-Public Use
  Company Number: IT-GLAXOSMITHKLINE-B0742860A

PATIENT
  Sex: Female

DRUGS (10)
  1. ASPIRIN [Concomitant]
     Dosage: 100MG PER DAY
     Route: 048
  2. BISOPROLOL FUMARATE [Suspect]
     Indication: HYPERTENSION
     Dosage: .62MG PER DAY
     Route: 048
     Dates: start: 20100101, end: 20110528
  3. ALDACTONE [Suspect]
     Indication: HYPERTENSION
     Dosage: 25MG PER DAY
     Route: 048
     Dates: start: 20100101, end: 20110528
  4. POTASSIUM CHLORIDE [Suspect]
     Indication: HYPOKALAEMIA
     Dosage: 600MG THREE TIMES PER DAY
     Route: 048
     Dates: start: 20100101, end: 20110528
  5. LEVOTHYROXINE SODIUM [Concomitant]
     Indication: HYPOTHYROIDISM
     Dosage: 75UG PER DAY
     Route: 048
  6. LANOXIN [Suspect]
     Indication: CARDIAC FAILURE
     Dosage: .125MG PER DAY
     Route: 048
     Dates: start: 20100101, end: 20110528
  7. MAGNESIUM SULFATE [Concomitant]
     Route: 042
  8. NITRODERM [Concomitant]
     Dosage: 5MG TWICE PER DAY
  9. LORAZEPAM [Concomitant]
     Dosage: 2.5MG PER DAY
     Route: 048
  10. LASIX [Concomitant]
     Dosage: 25MG PER DAY
     Route: 048

REACTIONS (4)
  - ARRHYTHMIA [None]
  - HYPERKALAEMIA [None]
  - TOXICITY TO VARIOUS AGENTS [None]
  - HYPERKINETIC HEART SYNDROME [None]
